FAERS Safety Report 6087392-5 (Version None)
Quarter: 2009Q1

REPORT INFORMATION
  Report Type: 
  Country: None (occurrence: None)
  Receive Date: 20090223
  Receipt Date: 20090216
  Transmission Date: 20090719
  Serious: Yes (Hospitalization)
  Sender: FDA-Public Use
  Company Number: US-ELI_LILLY_AND_COMPANY-US200902003660

PATIENT
  Sex: Female

DRUGS (3)
  1. HUMALOG [Suspect]
     Dosage: UNK, UNK
  2. HUMALOG [Suspect]
  3. LANTUS [Concomitant]
     Dosage: 34 U, UNK

REACTIONS (3)
  - BLOOD GLUCOSE ABNORMAL [None]
  - DIABETIC KETOACIDOSIS [None]
  - VOMITING [None]
